FAERS Safety Report 5976487-X (Version None)
Quarter: 2008Q4

REPORT INFORMATION
  Report Type: 
  Country: None (occurrence: None)
  Receive Date: 20081202
  Receipt Date: 20081121
  Transmission Date: 20090506
  Serious: Yes (Death)
  Sender: FDA-Public Use
  Company Number: GB-BAXTER-2008BH013179

PATIENT

DRUGS (14)
  1. CYCLOPHOSPHAMIDE [Suspect]
     Indication: BURKITT'S LYMPHOMA
     Route: 042
  2. CYCLOPHOSPHAMIDE [Suspect]
     Route: 042
  3. ETOPOSIDE [Suspect]
     Indication: BURKITT'S LYMPHOMA
     Route: 042
  4. IFOSFAMIDE [Suspect]
     Indication: BURKITT'S LYMPHOMA
     Route: 042
  5. MESNA [Suspect]
     Indication: BURKITT'S LYMPHOMA
     Route: 042
  6. VINCRISTINE SULFATE [Suspect]
     Indication: BURKITT'S LYMPHOMA
     Route: 042
  7. CYTARABINE [Suspect]
     Indication: BURKITT'S LYMPHOMA
     Route: 037
  8. CYTARABINE [Suspect]
     Route: 042
  9. METHOTREXATE [Suspect]
     Indication: BURKITT'S LYMPHOMA
     Route: 037
  10. METHOTREXATE [Suspect]
     Route: 042
  11. LEUCOVORIN CALCIUM [Suspect]
     Indication: BURKITT'S LYMPHOMA
     Route: 042
  12. LEUCOVORIN CALCIUM [Suspect]
     Route: 048
  13. DOXORUBICIN HCL [Suspect]
     Indication: BURKITT'S LYMPHOMA
     Route: 042
  14. NEUPOGEN [Suspect]
     Indication: BURKITT'S LYMPHOMA
     Route: 058

REACTIONS (1)
  - DEATH [None]
